FAERS Safety Report 6306150-7 (Version None)
Quarter: 2009Q3

REPORT INFORMATION
  Report Type: 
  Country: None (occurrence: None)
  Receive Date: 20090810
  Receipt Date: 20090729
  Transmission Date: 20100115
  Serious: Yes (Hospitalization)
  Sender: FDA-Public Use
  Company Number: 2009AL002568

PATIENT
  Age: 45 Year
  Sex: Male

DRUGS (7)
  1. DIGOXIN [Suspect]
     Dosage: PO
     Route: 048
     Dates: start: 20050905
  2. TOPROL-XL [Concomitant]
  3. ALTACE [Concomitant]
  4. LASIX [Concomitant]
  5. NORVASC [Concomitant]
  6. XANAX [Concomitant]
  7. TYLENOL (CAPLET) [Concomitant]

REACTIONS (8)
  - CARDIAC FAILURE CONGESTIVE [None]
  - DYSPNOEA AT REST [None]
  - DYSPNOEA EXERTIONAL [None]
  - ECONOMIC PROBLEM [None]
  - HYPERTENSION [None]
  - ILL-DEFINED DISORDER [None]
  - INJURY [None]
  - WHEEZING [None]
